FAERS Safety Report 4661299-X (Version None)
Quarter: 2005Q2

REPORT INFORMATION
  Report Type: 
  Country: None (occurrence: None)
  Receive Date: 20050513
  Receipt Date: 20050503
  Transmission Date: 20051028
  Serious: Yes (Death, Other)
  Sender: FDA-Public Use
  Company Number: DE-BRISTOL-MYERS SQUIBB COMPANY-12955761

PATIENT
  Age: 64 Year
  Sex: Male

DRUGS (3)
  1. TAXOL [Suspect]
     Indication: SMALL CELL LUNG CANCER STAGE UNSPECIFIED
     Route: 042
     Dates: start: 20040921, end: 20041125
  2. CARBOPLATIN [Suspect]
     Indication: SMALL CELL LUNG CANCER STAGE UNSPECIFIED
     Dates: start: 20040921, end: 20041125
  3. ETOPOSIDE [Suspect]
     Indication: SMALL CELL LUNG CANCER STAGE UNSPECIFIED
     Dates: start: 20040917, end: 20041124

REACTIONS (3)
  - HAEMORRHAGE [None]
  - MULTI-ORGAN FAILURE [None]
  - SYSTEMIC INFLAMMATORY RESPONSE SYNDROME [None]
